FAERS Safety Report 9253283 (Version 1)
Quarter: 2013Q2

REPORT INFORMATION
  Report Type: Spontaneous
  Country: JP (occurrence: JP)
  Receive Date: 20130424
  Receipt Date: 20130424
  Transmission Date: 20140414
  Serious: Yes (Hospitalization, Other)
  Sender: FDA-Public Use
  Company Number: JP-ABBOTT-13P-087-1078650-00

PATIENT
  Age: 72 Year
  Sex: Male

DRUGS (4)
  1. HUMIRA [Suspect]
     Indication: RHEUMATOID ARTHRITIS
     Route: 058
     Dates: start: 20110908
  2. HUMIRA [Suspect]
     Dates: end: 20130111
  3. METHOTREXATE [Suspect]
     Indication: RHEUMATOID ARTHRITIS
     Route: 048
     Dates: start: 201108, end: 20110922
  4. METHOTREXATE [Suspect]
     Dates: start: 20110922, end: 20111121

REACTIONS (5)
  - Device dislocation [Recovered/Resolved]
  - Haematoma infection [Recovered/Resolved]
  - Femoral neck fracture [Recovered/Resolved]
  - Cough [Unknown]
  - Pulmonary fibrosis [Unknown]
